FAERS Safety Report 23163112 (Version 1)
Quarter: 2023Q4

REPORT INFORMATION
  Report Type: Spontaneous
  Country: FR (occurrence: FR)
  Receive Date: 20231109
  Receipt Date: 20231109
  Transmission Date: 20240109
  Serious: Yes (Hospitalization)
  Sender: FDA-Public Use
  Company Number: None

PATIENT
  Age: 78 Year
  Sex: Male

DRUGS (13)
  1. PIROXICAM [Suspect]
     Active Substance: PIROXICAM
     Indication: Pain
     Dosage: UNIT DOSE : 1 DF ; FREQUENCY TIME :1 TOTAL; DURATION :1 DAY
     Dates: start: 20230926, end: 20230926
  2. NAPROXEN [Suspect]
     Active Substance: NAPROXEN
     Indication: Pain
     Dosage: UNIT DOSE : 550 MG ; FREQUENCY TIME :1 DAY ; DURATION : 5 DAYS
     Dates: start: 20230909, end: 20230914
  3. METEOSPASMYL (ALVERINE CITRATE\DIMETHICONE) [Suspect]
     Active Substance: ALVERINE CITRATE\DIMETHICONE
     Indication: Gastrointestinal disorder
     Dosage: UNIT DOSE : 1 DF ; FREQUENCY TIME :12 HOURS, THERAPY START DATE : NASK
     Dates: end: 20230926
  4. METHOCARBAMOL [Suspect]
     Active Substance: METHOCARBAMOL
     Indication: Muscle spasms
     Dosage: STRENGTH : 500 MG, UNIT DOSE : 1 DF; FREQUENCY TIME : 8 HOURS ; DURATION : 5 DAYS
     Dates: start: 20230911, end: 20230916
  5. DAFALGAN CODEINE [Suspect]
     Active Substance: ACETAMINOPHEN\CODEINE PHOSPHATE
     Indication: Pain
     Dosage: IF SEVERE PAIN, UNIT DOSE : 1 DF; FREQUENCY TIME :4 HOURS; DURATION : 1 DAY
     Dates: start: 20230926, end: 20230926
  6. ACUPAN [Suspect]
     Active Substance: NEFOPAM HYDROCHLORIDE
     Indication: Pain
     Dosage: UNIT DOSE : 1 DF; FREQUENCY TIME :1 TOTAL; DURATION : 1 DAY
     Dates: start: 20230926, end: 20230926
  7. MICARDIS [Concomitant]
     Active Substance: TELMISARTAN
     Indication: Hypertension
     Dosage: STRENGTH : 80 MG; UNIT DOSE : 1 DF; FREQUENCY TIME :1 DAY
  8. LERCANIDIPINE VIATRIS [Concomitant]
     Indication: Hypertension
     Dosage: STRENGTH : 10 MG, UNIT DOSE : 1 DF; FREQUENCY TIME :12 HOURS
  9. HERBALS\SAW PALMETTO [Concomitant]
     Active Substance: HERBALS\SAW PALMETTO
     Indication: Benign prostatic hyperplasia
     Dosage: STRENGTH : 160 MG, UNIT DOSE : 2 DF ; FREQUENCY TIME :1 DAY
  10. PANTOPRAZOLE SODIUM [Concomitant]
     Active Substance: PANTOPRAZOLE SODIUM
     Indication: Gastritis prophylaxis
     Dosage: STRENGTH : 20 MG, UNIT DOSE : 1 DF ; FREQUENCY TIME :1 DAY
  11. ENBREL [Concomitant]
     Active Substance: ETANERCEPT
     Indication: Psoriatic arthropathy
     Dosage: TUESDAY, STRENGTH : 50 MG, UNIT DOSE : 50 MG ; FREQUENCY TIME :1 WEEK
  12. HYDROCHLOROTHIAZIDE\NEBIVOLOL HYDROCHLORIDE [Concomitant]
     Active Substance: HYDROCHLOROTHIAZIDE\NEBIVOLOL HYDROCHLORIDE
     Indication: Hypertension
     Dosage: TEMERITDUO 5 MG/12.5 MG, UNIT DOSE : 1 DF ; FREQUENCY TIME :1 DAY
  13. VASTEN [Concomitant]
     Indication: Dyslipidaemia
     Dosage: VASTEN 20 MG, SCORED TABLET, UNIT DOSE : 1 DF; FREQUENCY TIME :1 DAY

REACTIONS (2)
  - Hepatic cytolysis [Recovering/Resolving]
  - Overdose [Recovering/Resolving]

NARRATIVE: CASE EVENT DATE: 20230901
